FAERS Safety Report 7007491-0 (Version None)
Quarter: 2010Q3

REPORT INFORMATION
  Report Type: 
  Country: None (occurrence: None)
  Receive Date: 20100914
  Receipt Date: 20100908
  Transmission Date: 20110219
  Serious: Yes (Hospitalization)
  Sender: FDA-Public Use
  Company Number: 2010SP043296

PATIENT
  Age: 71 Year
  Sex: Female

DRUGS (9)
  1. REFLEX (MIRTAZAPINE /01293201/) [Suspect]
     Indication: DEPRESSION
     Dosage: 15 MG; ; PO
     Route: 048
     Dates: start: 20100726, end: 20100801
  2. CARBOPLATIN [Concomitant]
  3. PACLITAXEL [Concomitant]
  4. DIPHENHYDRAMINE HYDROCHLORIDE [Concomitant]
  5. APREPITANT [Concomitant]
  6. GRANISETRON HYDROCHLORIDE [Concomitant]
  7. RANITIDINE HYDROCHLORIDE [Concomitant]
  8. DEXAMETHASONE SODIUM PHOSPHATE [Concomitant]
  9. ETODOLAC [Concomitant]

REACTIONS (5)
  - DECREASED APPETITE [None]
  - DIARRHOEA [None]
  - HYPOPHAGIA [None]
  - INAPPROPRIATE ANTIDIURETIC HORMONE SECRETION [None]
  - WHITE BLOOD CELL COUNT DECREASED [None]
